FAERS Safety Report 9757925 (Version 1)
Quarter: 2013Q4

REPORT INFORMATION
  Report Type: Spontaneous
  Country: DE (occurrence: DE)
  Receive Date: 20131216
  Receipt Date: 20131216
  Transmission Date: 20140711
  Serious: Yes (Life-Threatening, Hospitalization)
  Sender: FDA-Public Use
  Company Number: DE-BAYER-2013-152832

PATIENT
  Age: 31 Year
  Sex: Female
  Weight: 55 kg

DRUGS (1)
  1. GADOVIST [Suspect]
     Indication: ANGIOGRAM
     Dosage: 7 ML, ONCE
     Route: 042
     Dates: start: 20131128, end: 20131128

REACTIONS (5)
  - Anaphylactic reaction [Unknown]
  - Respiratory depression [Unknown]
  - Nausea [Unknown]
  - Erythema [Unknown]
  - Loss of consciousness [Unknown]
